FAERS Safety Report 7896563-4 (Version None)
Quarter: 2011Q4

REPORT INFORMATION
  Report Type: 
  Country: None (occurrence: None)
  Receive Date: 20111106
  Receipt Date: 20111103
  Transmission Date: 20120403
  Serious: No
  Sender: FDA-Public Use
  Company Number: US-AMGEN-USASP2011040912

PATIENT
  Age: 37 Year
  Sex: Female
  Weight: 104.76 kg

DRUGS (1)
  1. ENBREL [Suspect]
     Indication: RHEUMATOID ARTHRITIS
     Dosage: 50 MG, QWK
     Route: 058
     Dates: start: 20110719, end: 20110801

REACTIONS (6)
  - RASH [None]
  - FATIGUE [None]
  - LATEX ALLERGY [None]
  - INJECTION SITE URTICARIA [None]
  - PRURITUS GENERALISED [None]
  - DERMATITIS BULLOUS [None]
